FAERS Safety Report 11660171 (Version 1)
Quarter: 2015Q4

REPORT INFORMATION
  Report Type: Spontaneous
  Country: US (occurrence: US)
  Receive Date: 20151026
  Receipt Date: 20151026
  Transmission Date: 20160304
  Serious: No
  Sender: FDA-Public Use
  Company Number: US-BAYER-2015-451211

PATIENT
  Age: 3 Year
  Sex: Male
  Weight: 13.61 kg

DRUGS (2)
  1. CHILDREN CLARITIN ALLERGY [Suspect]
     Active Substance: LORATADINE
     Dosage: UNK
     Route: 048
  2. CHILDREN CLARITIN ALLERGY [Suspect]
     Active Substance: LORATADINE
     Dosage: AT THE MOST 15 MILLILITERS, ONCE
     Route: 048
     Dates: start: 20151022, end: 20151022

REACTIONS (2)
  - Expired product administered [None]
  - Accidental exposure to product by child [None]

NARRATIVE: CASE EVENT DATE: 20151022
